FAERS Safety Report 14484505 (Version 1)
Quarter: 2018Q1

REPORT INFORMATION
  Report Type: Spontaneous
  Country: US (occurrence: US)
  Receive Date: 20180202
  Receipt Date: 20180202
  Transmission Date: 20180509
  Serious: Yes (Disabling, Other)
  Sender: FDA-Public Use
  Company Number: None

PATIENT
  Age: 32 Year
  Sex: Female
  Weight: 69.3 kg

DRUGS (8)
  1. WALKER SEAT [Concomitant]
     Active Substance: DEVICE
  2. SHOWER CHAIR [Concomitant]
  3. XYZAL [Concomitant]
     Active Substance: LEVOCETIRIZINE DIHYDROCHLORIDE
  4. TECFIDERA [Suspect]
     Active Substance: DIMETHYL FUMARATE
     Indication: RELAPSING-REMITTING MULTIPLE SCLEROSIS
  5. COPAXONE [Concomitant]
     Active Substance: GLATIRAMER ACETATE
  6. CYCLOBENZAPRINE. [Concomitant]
     Active Substance: CYCLOBENZAPRINE
  7. TOPIRAMATE. [Concomitant]
     Active Substance: TOPIRAMATE
  8. OXCARBAZEPINE. [Concomitant]
     Active Substance: OXCARBAZEPINE

REACTIONS (4)
  - Abdominal pain upper [None]
  - Gastrointestinal pain [None]
  - Sepsis [None]
  - Anal incontinence [None]
